FAERS Safety Report 7339946-3 (Version None)
Quarter: 2011Q1

REPORT INFORMATION
  Report Type: 
  Country: None (occurrence: None)
  Receive Date: 20110309
  Receipt Date: 20110301
  Transmission Date: 20110831
  Serious: Yes (Hospitalization)
  Sender: FDA-Public Use
  Company Number: US-US-EMD SERONO, INC.-7033630

PATIENT
  Sex: Female
  Weight: 49 kg

DRUGS (2)
  1. PREDNISONE [Concomitant]
     Dates: start: 20101119, end: 20101210
  2. REBIF [Suspect]
     Indication: MULTIPLE SCLEROSIS
     Route: 058
     Dates: start: 20100914

REACTIONS (3)
  - HYPOAESTHESIA [None]
  - INJECTION SITE HAEMORRHAGE [None]
  - CELLULITIS [None]
